FAERS Safety Report 5764391-1 (Version None)
Quarter: 2008Q2

REPORT INFORMATION
  Report Type: 
  Country: None (occurrence: None)
  Receive Date: 20080604
  Receipt Date: 20080527
  Transmission Date: 20081010
  Serious: Yes (Other)
  Sender: FDA-Public Use
  Company Number: 8032581

PATIENT
  Age: 47 Year
  Sex: Male

DRUGS (1)
  1. KEPPRA [Suspect]
     Dosage: 250 MG 3/D

REACTIONS (1)
  - HEPATIC STEATOSIS [None]
